FAERS Safety Report 15974763 (Version 1)
Quarter: 2019Q1

REPORT INFORMATION
  Report Type: Spontaneous
  Country: US (occurrence: US)
  Receive Date: 20190218
  Receipt Date: 20190218
  Transmission Date: 20190418
  Serious: No
  Sender: FDA-Public Use
  Company Number: US-TEVA-2019-US-1001790

PATIENT
  Age: 48 Year
  Sex: Female

DRUGS (1)
  1. BUSPIRONE HYDROCHLORIDE TABLETS TEVA [Suspect]
     Active Substance: BUSPIRONE HYDROCHLORIDE
     Indication: ANXIETY
     Route: 065
     Dates: start: 20181102

REACTIONS (6)
  - Anxiety [Unknown]
  - Sinusitis [Unknown]
  - Headache [Unknown]
  - Fatigue [Unknown]
  - Abdominal distension [Unknown]
  - Feeling abnormal [Unknown]

NARRATIVE: CASE EVENT DATE: 20181106
